FAERS Safety Report 10880142 (Version 1)
Quarter: 2015Q1

REPORT INFORMATION
  Report Type: Spontaneous
  Country: US (occurrence: US)
  Receive Date: 20150302
  Receipt Date: 20150302
  Transmission Date: 20150721
  Serious: No
  Sender: FDA-Public Use
  Company Number: US-PFIZER INC-2015070873

PATIENT
  Age: 61 Year
  Sex: Female
  Weight: 68.27 kg

DRUGS (4)
  1. LYRICA [Suspect]
     Active Substance: PREGABALIN
     Indication: FIBROMYALGIA
     Dosage: 100 MG, 1X/DAY
     Dates: start: 2014
  2. L-TRYPTOPHANE [Suspect]
     Active Substance: TRYPTOPHAN
     Indication: SERUM SEROTONIN DECREASED
     Dosage: 500 MG, 1X/DAY
     Dates: start: 201412
  3. MELOXICAM. [Concomitant]
     Active Substance: MELOXICAM
     Dosage: UNK
  4. L-TRYPTOPHANE [Suspect]
     Active Substance: TRYPTOPHAN
     Indication: INSOMNIA
     Dosage: 500 MG, 1X/DAY
     Dates: start: 201412

REACTIONS (2)
  - Dyspnoea [Unknown]
  - Pain [Not Recovered/Not Resolved]
